FAERS Safety Report 15342771 (Version 1)
Quarter: 2018Q4

REPORT INFORMATION
  Report Type: Spontaneous
  Country: IT (occurrence: IT)
  Receive Date: 20180903
  Receipt Date: 20180903
  Transmission Date: 20190204
  Serious: Yes (Hospitalization)
  Sender: FDA-Public Use
  Company Number: IT-TEVA-2018-IT-950280

PATIENT
  Sex: Male

DRUGS (1)
  1. ROSUVASTATINA TEVA 10MG [Suspect]
     Active Substance: ROSUVASTATIN
     Dates: start: 201807

REACTIONS (4)
  - Product substitution issue [Unknown]
  - Dyspnoea [Recovered/Resolved]
  - Erythema [Recovered/Resolved]
  - Pruritus [Recovered/Resolved]
